FAERS Safety Report 13839090 (Version 1)
Quarter: 2017Q3

REPORT INFORMATION
  Report Type: Spontaneous
  Country: US (occurrence: US)
  Receive Date: 20170805
  Receipt Date: 20170805
  Transmission Date: 20171127
  Serious: Yes (Hospitalization)
  Sender: FDA-Public Use
  Company Number: None

PATIENT
  Age: 76 Year
  Sex: Male
  Weight: 104.45 kg

DRUGS (2)
  1. LISINOPRIL. [Suspect]
     Active Substance: LISINOPRIL
     Indication: HYPERTENSION
     Route: 048
     Dates: start: 20160623, end: 20170126
  2. SULFAMETHOXAZOLE/TRIMETHOPRIM [Suspect]
     Active Substance: SULFAMETHOXAZOLE\TRIMETHOPRIM
     Indication: OSTEOMYELITIS
     Route: 048
     Dates: start: 20160907, end: 20170127

REACTIONS (6)
  - Hypophagia [None]
  - Laboratory test abnormal [None]
  - Electrocardiogram T wave peaked [None]
  - Blood creatinine increased [None]
  - Blood potassium increased [None]
  - Blood urea increased [None]

NARRATIVE: CASE EVENT DATE: 20170202
